FAERS Safety Report 8401592-8 (Version None)
Quarter: 2012Q2

REPORT INFORMATION
  Report Type: 
  Country: None (occurrence: None)
  Receive Date: 20120601
  Receipt Date: 20120523
  Transmission Date: 20120825
  Serious: Yes (Hospitalization)
  Sender: FDA-Public Use
  Company Number: US-JNJFOC-20120518319

PATIENT
  Sex: Female
  Weight: 109.77 kg

DRUGS (4)
  1. DURAGESIC-100 [Suspect]
     Route: 062
     Dates: start: 20040101, end: 20080101
  2. DURAGESIC-100 [Suspect]
     Indication: MULTIPLE SCLEROSIS
     Route: 062
     Dates: start: 20090101
  3. MORPHINE SULFATE [Concomitant]
     Indication: PAIN
     Dosage: 3-4 DAILY AS NEEDED
     Route: 048
     Dates: start: 20040101
  4. DURAGESIC-100 [Suspect]
     Route: 062
     Dates: start: 20080101, end: 20090101

REACTIONS (6)
  - THYROID CANCER [None]
  - DRUG INEFFECTIVE [None]
  - MEMORY IMPAIRMENT [None]
  - PRODUCT QUALITY ISSUE [None]
  - CENTRAL NERVOUS SYSTEM LESION [None]
  - WRONG TECHNIQUE IN DRUG USAGE PROCESS [None]
